FAERS Safety Report 8486411-6 (Version None)
Quarter: 2012Q3

REPORT INFORMATION
  Report Type: 
  Country: None (occurrence: None)
  Receive Date: 20120703
  Receipt Date: 20120628
  Transmission Date: 20120928
  Serious: Yes (Hospitalization, Other)
  Sender: FDA-Public Use
  Company Number: US-PFIZER INC-2006002022

PATIENT
  Sex: Female
  Weight: 61.224 kg

DRUGS (32)
  1. LYRICA [Suspect]
     Indication: NEURALGIA
     Dosage: 50 MG, 2X/DAY
     Route: 048
     Dates: start: 20100101
  2. ALBUTEROL [Concomitant]
     Indication: ASTHMA
     Dosage: TWO PUFFS AS NEEDED
  3. DIOVAN [Concomitant]
  4. CENTRUM [Concomitant]
     Dosage: 600 MG, 2X/DAY
  5. IBANDRONATE SODIUM [Concomitant]
     Dosage: ONCE A MONTH
  6. LOVAZA [Concomitant]
     Dosage: 1200 MG, UNK
  7. PLAVIX [Concomitant]
     Indication: ANTICOAGULANT THERAPY
     Dosage: 75 MG, DAILY
  8. VITAMIN B-12 [Concomitant]
     Dosage: UNK
  9. ASCORBIC ACID [Concomitant]
     Dosage: UNK
  10. ULTRACET [Concomitant]
  11. OXYCODONE [Concomitant]
     Indication: BACK DISORDER
     Dosage: 5 MG, UNK
  12. NEXIUM [Concomitant]
  13. LIPITOR [Suspect]
     Indication: BLOOD CHOLESTEROL INCREASED
     Dosage: 20 MG, 1X/DAY
     Route: 048
     Dates: start: 19910101
  14. DIOVAN HCT [Concomitant]
  15. EPINASTINE [Concomitant]
  16. VITAMIN B-12 [Concomitant]
     Dosage: 500 MG, UNK
  17. ONDANSETRON HYDROCHLORIDE [Concomitant]
     Indication: NAUSEA
     Dosage: 8 MG, AS NEEDED
  18. LOVAZA [Concomitant]
     Dosage: UNK
  19. CALCIUM [Concomitant]
     Dosage: UNK
  20. NASONEX [Concomitant]
  21. ASCORBIC ACID [Concomitant]
     Dosage: 500 MG, UNK
  22. ZANTAC [Concomitant]
     Indication: GASTROOESOPHAGEAL REFLUX DISEASE
     Dosage: 75 MG, AS NEEDED
  23. ALBUTEROL SULFATE [Concomitant]
     Indication: ASTHMA
     Dosage: 0.5 MG, AS NEEDED
  24. VITAMIN D [Concomitant]
     Indication: VITAMIN D DEFICIENCY
     Dosage: 5000 IU, AS NEEDED
     Route: 048
  25. EVISTA [Concomitant]
  26. XOPENEX [Concomitant]
     Dosage: AS AND WHEN REQUIRED
  27. PULMICORT [Concomitant]
     Indication: ASTHMA
     Dosage: UNK
  28. PULMICORT [Concomitant]
     Dosage: 0.5 MG, AS NEEDED
  29. CITRACAL + D [Concomitant]
  30. CLINDAMYCIN [Concomitant]
     Dosage: AS AND WHEN REQUIRED
  31. LASIX [Concomitant]
  32. SINGULAIR [Concomitant]
     Indication: HYPERSENSITIVITY
     Dosage: 10 MG, AS NEEDED

REACTIONS (29)
  - CEREBROVASCULAR ACCIDENT [None]
  - CHEST PAIN [None]
  - NAUSEA [None]
  - FALL [None]
  - TRANSIENT ISCHAEMIC ATTACK [None]
  - ARTHRITIS [None]
  - NASOPHARYNGITIS [None]
  - JOINT INJURY [None]
  - BLOOD PRESSURE INADEQUATELY CONTROLLED [None]
  - OSTEOPOROSIS [None]
  - FOOD POISONING [None]
  - VOMITING [None]
  - BODY HEIGHT DECREASED [None]
  - IRRITABILITY [None]
  - HYPOAESTHESIA [None]
  - ASTHMA [None]
  - HYPERTENSION [None]
  - DEHYDRATION [None]
  - HYPERSENSITIVITY [None]
  - VERTIGO [None]
  - DIZZINESS [None]
  - LIGAMENT RUPTURE [None]
  - BLOOD POTASSIUM DECREASED [None]
  - ANAEMIA [None]
  - EPISTAXIS [None]
  - INJURY [None]
  - GLUCOSE TOLERANCE IMPAIRED [None]
  - GASTRIC DISORDER [None]
  - FIBROMYALGIA [None]
